FAERS Safety Report 23027915 (Version 5)
Quarter: 2025Q4

REPORT INFORMATION
  Report Type: Spontaneous
  Country: AR (occurrence: AR)
  Receive Date: 20231004
  Receipt Date: 20251217
  Transmission Date: 20260117
  Serious: Yes (Other)
  Sender: SANDOZ
  Company Number: AR-002147023-NVSC2022AR092233

PATIENT
  Age: 45 Year
  Sex: Female

DRUGS (16)
  1. ANASTROZOLE [Suspect]
     Active Substance: ANASTROZOLE
     Indication: Product used for unknown indication
     Dosage: 1 MG, QD
     Route: 065
     Dates: end: 2017
  2. ANASTROZOLE [Suspect]
     Active Substance: ANASTROZOLE
     Indication: Breast cancer metastatic
  3. FEMARA [Suspect]
     Active Substance: LETROZOLE
     Indication: Breast cancer metastatic
     Dosage: UNK
     Route: 065
     Dates: start: 20220217
  4. FEMARA [Suspect]
     Active Substance: LETROZOLE
     Dosage: UNK, 1/4
     Route: 065
  5. KISQALI [Suspect]
     Active Substance: RIBOCICLIB SUCCINATE
     Dosage: 600 MG, 3 OF 200 MG, QD
     Route: 048
     Dates: start: 20220217
  6. KISQALI [Suspect]
     Active Substance: RIBOCICLIB SUCCINATE
     Dosage: 600 MG, 3 OF 200 MG, QD
     Route: 065
  7. KISQALI [Suspect]
     Active Substance: RIBOCICLIB SUCCINATE
     Dosage: 600 MG, 3 OF 200 MG,QD
     Route: 048
     Dates: start: 20220722, end: 20230401
  8. KISQALI [Suspect]
     Active Substance: RIBOCICLIB SUCCINATE
     Indication: Breast cancer metastatic
     Dosage: 600 MG, QD
     Route: 048
     Dates: start: 20220212
  9. LEUPROLIDE ACETATE [Suspect]
     Active Substance: LEUPROLIDE ACETATE
     Indication: Breast cancer metastatic
     Dosage: 22.5 MG, Q3MO
     Route: 065
  10. LEUPROLIDE ACETATE [Suspect]
     Active Substance: LEUPROLIDE ACETATE
     Dosage: 7.5 MG, QMO
     Route: 042
  11. ZOMETA [Suspect]
     Active Substance: ZOLEDRONIC ACID
     Indication: Breast cancer metastatic
     Dosage: 4 MG, QMO
     Route: 042
  12. ANASTROZOLE [Concomitant]
     Active Substance: ANASTROZOLE
     Indication: Product used for unknown indication
     Dosage: 1 MG, QD
     Route: 065
     Dates: start: 2015, end: 2017
  13. ANASTROZOLE [Concomitant]
     Active Substance: ANASTROZOLE
     Dosage: 1 MG, QD
     Route: 065
     Dates: start: 2019, end: 2020
  14. ANASTROZOLE [Concomitant]
     Active Substance: ANASTROZOLE
     Dosage: 1 MG, QD
     Route: 065
     Dates: start: 2021
  15. TRAMADOL [Concomitant]
     Active Substance: TRAMADOL
     Indication: Product used for unknown indication
     Route: 065
  16. GOSERELIN [Concomitant]
     Active Substance: GOSERELIN
     Indication: Breast cancer
     Dosage: 3.6 MG, Q3W
     Route: 065
     Dates: start: 2019

REACTIONS (35)
  - Choking [Unknown]
  - Mobility decreased [Unknown]
  - Breast cancer metastatic [Unknown]
  - Metastases to central nervous system [Unknown]
  - Metastases to bone [Unknown]
  - Malignant neoplasm progression [Unknown]
  - Weight decreased [Unknown]
  - Drug intolerance [Unknown]
  - Muscle spasms [Unknown]
  - Agitation [Recovering/Resolving]
  - Throat tightness [Unknown]
  - Dysphonia [Unknown]
  - Oropharyngeal pain [Unknown]
  - Oral infection [Unknown]
  - Mouth injury [Unknown]
  - Gingival swelling [Unknown]
  - Neck mass [Unknown]
  - Neck pain [Unknown]
  - Musculoskeletal chest pain [Unknown]
  - Hiatus hernia [Unknown]
  - Osteoarthropathy [Unknown]
  - Sensory loss [Unknown]
  - Memory impairment [Unknown]
  - Somnolence [Unknown]
  - Pain in extremity [Unknown]
  - Chest pain [Unknown]
  - Cough [Unknown]
  - Hypoaesthesia [Unknown]
  - Tremor [Unknown]
  - Fatigue [Unknown]
  - Vomiting [Recovered/Resolved]
  - Headache [Unknown]
  - Vomiting [Unknown]
  - Malaise [Unknown]
  - Incorrect dose administered [Unknown]

NARRATIVE: CASE EVENT DATE: 20230109
